FAERS Safety Report 8775328 (Version 1)
Quarter: 2012Q4

REPORT INFORMATION
  Report Type: 
  Country: US (occurrence: US)
  Receive Date: 20120910
  Receipt Date: 20120910
  Transmission Date: 20130627
  Serious: No
  Sender: FDA-Public Use
  Company Number: US-009507513-1208USA011193

PATIENT

DRUGS (7)
  1. PEGINTRON [Suspect]
     Dosage: 0.5 ml, qw
     Route: 058
  2. PEG-INTRON [Suspect]
     Dosage: 50 UNK, UNK
  3. REBETOL [Suspect]
  4. CYANOCOBALAMIN [Concomitant]
  5. VITAMINS (UNSPECIFIED) [Concomitant]
  6. TYLENOL [Concomitant]
     Dosage: UNK, q8h
  7. TELAPREVIR [Concomitant]

REACTIONS (5)
  - Anaemia [Unknown]
  - Rash [Unknown]
  - Pruritus [Unknown]
  - Dry skin [Unknown]
  - Chest pain [Unknown]
